FAERS Safety Report 26080873 (Version 2)
Quarter: 2025Q4

REPORT INFORMATION
  Report Type: Spontaneous
  Country: US (occurrence: US)
  Receive Date: 20251124
  Receipt Date: 20251211
  Transmission Date: 20260117
  Serious: Yes (Hospitalization)
  Sender: ABBVIE
  Company Number: US-ABBVIE-6559600

PATIENT
  Age: 75 Year
  Sex: Male

DRUGS (1)
  1. VYALEV [Suspect]
     Active Substance: FOSCARBIDOPA\FOSLEVODOPA
     Indication: Parkinson^s disease
     Dosage: CONTINUOUS 24-HOUR INFUSION
     Route: 058

REACTIONS (3)
  - Hospitalisation [Unknown]
  - Infusion site cellulitis [Unknown]
  - Infusion site hypersensitivity [Unknown]

NARRATIVE: CASE EVENT DATE: 20250901
